FAERS Safety Report 7798569-2 (Version None)
Quarter: 2011Q4

REPORT INFORMATION
  Report Type: 
  Country: None (occurrence: None)
  Receive Date: 20111005
  Receipt Date: 20111003
  Transmission Date: 20120403
  Serious: Yes (Hospitalization, Disabling)
  Sender: FDA-Public Use
  Company Number: US-MERCK-0903USA04209

PATIENT
  Age: 51 Year
  Sex: Female
  Weight: 46 kg

DRUGS (7)
  1. METOPROLOL [Concomitant]
     Route: 065
  2. FOSAMAX [Suspect]
     Indication: OSTEOPOROSIS
     Route: 048
     Dates: start: 20000101, end: 20090106
  3. ALENDRONATE SODIUM [Suspect]
     Indication: OSTEOPENIA
     Route: 048
     Dates: start: 20080217, end: 20081201
  4. CIPROFLOXACIN [Concomitant]
     Route: 065
  5. FOSAMAX [Suspect]
     Indication: OSTEOPENIA
     Route: 048
     Dates: start: 20000101, end: 20090106
  6. ACTONEL [Suspect]
     Route: 065
  7. ALENDRONATE SODIUM [Suspect]
     Indication: OSTEOPOROSIS
     Route: 048
     Dates: start: 20080217, end: 20081201

REACTIONS (43)
  - JAW FRACTURE [None]
  - ABSCESS ORAL [None]
  - WEIGHT DECREASED [None]
  - JAW DISORDER [None]
  - INFUSION SITE CELLULITIS [None]
  - DIARRHOEA [None]
  - CELLULITIS [None]
  - OSTEONECROSIS [None]
  - DENTAL CARIES [None]
  - ANAEMIA [None]
  - FISTULA DISCHARGE [None]
  - ORAL CAVITY FISTULA [None]
  - PURULENT DISCHARGE [None]
  - TOOTH ABSCESS [None]
  - RETINAL ISCHAEMIA [None]
  - OSTEONECROSIS OF JAW [None]
  - OSTEOMYELITIS [None]
  - FEMUR FRACTURE [None]
  - FATIGUE [None]
  - VOMITING [None]
  - VISUAL IMPAIRMENT [None]
  - LUNG DISORDER [None]
  - INFECTION [None]
  - BLOOD CHOLESTEROL INCREASED [None]
  - ABSCESS JAW [None]
  - CHRONIC OBSTRUCTIVE PULMONARY DISEASE [None]
  - ORAL TORUS [None]
  - GINGIVAL DISORDER [None]
  - AGORAPHOBIA [None]
  - FALL [None]
  - ERYTHEMA [None]
  - DERMATITIS EXFOLIATIVE [None]
  - BLOOD TRIGLYCERIDES INCREASED [None]
  - IMPAIRED HEALING [None]
  - HYPERTENSION [None]
  - ANAEMIA POSTOPERATIVE [None]
  - SOFT TISSUE DISORDER [None]
  - SKIN INDURATION [None]
  - RENAL FAILURE [None]
  - BONE NEOPLASM MALIGNANT [None]
  - ORAL INFECTION [None]
  - DYSGEUSIA [None]
  - EXOSTOSIS [None]
